FAERS Safety Report 8988360 (Version 1)
Quarter: 2012Q4

REPORT INFORMATION
  Report Type: Spontaneous
  Country: US (occurrence: None)
  Receive Date: 20121220
  Receipt Date: 20121220
  Transmission Date: 20130627
  Serious: Yes (Life-Threatening)
  Sender: FDA-Public Use
  Company Number: None

PATIENT
  Sex: Female
  Weight: 63.5 kg

DRUGS (4)
  1. CYMBALTA [Suspect]
     Indication: CHRONIC PAIN
     Dosage: 30mg 1 daily po
     Route: 048
     Dates: start: 20070915, end: 20080615
  2. CYMBALTA [Suspect]
     Indication: DEPRESSION
     Dosage: 30mg 1 daily po
     Route: 048
     Dates: start: 20070915, end: 20080615
  3. CYMBALTA 60MG LILLY [Suspect]
     Indication: CHRONIC PAIN
     Dosage: 60mg  1 daily  po
     Route: 048
     Dates: start: 20080615, end: 20090915
  4. CYMBALTA 60MG LILLY [Suspect]
     Indication: DEPRESSION
     Dosage: 60mg  1 daily  po
     Route: 048
     Dates: start: 20080615, end: 20090915

REACTIONS (4)
  - Anger [None]
  - Impulse-control disorder [None]
  - Suicidal ideation [None]
  - Family stress [None]
